FAERS Safety Report 4313660-0 (Version None)
Quarter: 2004Q1

REPORT INFORMATION
  Report Type: 
  Country: None (occurrence: None)
  Receive Date: 20040304
  Receipt Date: 20040216
  Transmission Date: 20041129
  Serious: Yes (Hospitalization, Other)
  Sender: FDA-Public Use
  Company Number: USA030845189

PATIENT
  Age: 85 Year
  Sex: Female
  Weight: 46 kg

DRUGS (1)
  1. FORTEO [Suspect]
     Indication: OSTEOPOROSIS
     Dosage: 20 UG/DAY
     Dates: start: 20030618, end: 20040101

REACTIONS (4)
  - DIVERTICULITIS [None]
  - FALL [None]
  - HEADACHE [None]
  - RIB FRACTURE [None]
